FAERS Safety Report 14305533 (Version 1)
Quarter: 2017Q4

REPORT INFORMATION
  Report Type: Spontaneous
  Country: JP (occurrence: JP)
  Receive Date: 20171219
  Receipt Date: 20171219
  Transmission Date: 20180321
  Serious: Yes (Hospitalization)
  Sender: FDA-Public Use
  Company Number: JP-OTSUKA-JP-2011-11326

PATIENT
  Age: 22 Year
  Sex: Female
  Weight: 52 kg

DRUGS (10)
  1. SEDIEL [Suspect]
     Active Substance: TANDOSPIRONE
     Dosage: 10 MG, TID
     Route: 048
     Dates: start: 20110824
  2. ABILIFY [Suspect]
     Active Substance: ARIPIPRAZOLE
     Dosage: 24 MG, QD
     Route: 048
     Dates: start: 2011
  3. REFLEX [Concomitant]
     Active Substance: MIRTAZAPINE
     Indication: DEPRESSED MOOD
     Dosage: 30 MG, QD
     Route: 048
     Dates: start: 20110627
  4. REFLEX [Concomitant]
     Active Substance: MIRTAZAPINE
     Dosage: 30 MG, QD
     Route: 048
     Dates: start: 20110824
  5. SEDIEL [Suspect]
     Active Substance: TANDOSPIRONE
     Dosage: 10 MG, TID
     Route: 048
     Dates: start: 20110627
  6. AKIRIDEN [Suspect]
     Active Substance: BIPERIDEN
     Dosage: 1 MG, PRN
     Route: 048
     Dates: start: 2011, end: 20110707
  7. ABILIFY [Suspect]
     Active Substance: ARIPIPRAZOLE
     Indication: SCHIZOPHRENIA
     Dosage: 336 MG, QD
     Route: 048
     Dates: start: 20110808, end: 20110808
  8. SEDIEL [Suspect]
     Active Substance: TANDOSPIRONE
     Indication: ANXIETY
     Dosage: 420 MG, QD
     Route: 048
     Dates: start: 20110808, end: 20110808
  9. AKIRIDEN [Suspect]
     Active Substance: BIPERIDEN
     Indication: PARKINSONISM
     Dosage: ESTIMATED AS OVER 40 MG, DAILY DOSE
     Route: 048
     Dates: start: 20110808, end: 20110808
  10. ABILIFY [Suspect]
     Active Substance: ARIPIPRAZOLE
     Dosage: 24 MG, QD
     Route: 048
     Dates: start: 20110824

REACTIONS (4)
  - Dysarthria [Recovered/Resolved]
  - Altered state of consciousness [Recovered/Resolved]
  - Intentional overdose [Unknown]
  - Seizure [Recovered/Resolved]

NARRATIVE: CASE EVENT DATE: 20110808
